FAERS Safety Report 10076650 (Version 7)
Quarter: 2014Q4

REPORT INFORMATION
  Report Type: Spontaneous
  Country: US (occurrence: US)
  Receive Date: 20140414
  Receipt Date: 20141111
  Transmission Date: 20150528
  Serious: Yes (Hospitalization, Other)
  Sender: FDA-Public Use
  Company Number: US-PFIZER INC-2014102640

PATIENT
  Age: 55 Year
  Sex: Male
  Weight: 95.24 kg

DRUGS (3)
  1. LIPITOR [Concomitant]
     Active Substance: ATORVASTATIN CALCIUM
     Dosage: UNK
  2. VIAGRA [Suspect]
     Active Substance: SILDENAFIL CITRATE
     Indication: ERECTILE DYSFUNCTION
     Dosage: 100 MG, DAILY AS NEEDED
     Route: 048
  3. VIAGRA [Suspect]
     Active Substance: SILDENAFIL CITRATE
     Dosage: UNK
     Dates: start: 199906

REACTIONS (7)
  - Vision blurred [Unknown]
  - Malignant melanoma [Unknown]
  - Weight increased [Unknown]
  - Rash [Unknown]
  - Skin disorder [Unknown]
  - Nasal disorder [Unknown]
  - Scar [Recovered/Resolved]

NARRATIVE: CASE EVENT DATE: 2008
